FAERS Safety Report 12263936 (Version 2)
Quarter: 2016Q3

REPORT INFORMATION
  Report Type: Spontaneous
  Country: US (occurrence: US)
  Receive Date: 20160413
  Receipt Date: 20160907
  Transmission Date: 20161109
  Serious: No
  Sender: FDA-Public Use
  Company Number: US-JNJFOC-20160405000

PATIENT
  Age: 57 Year
  Sex: Female
  Weight: 54.89 kg

DRUGS (3)
  1. LISINOPRIL. [Concomitant]
     Active Substance: LISINOPRIL
     Indication: BLOOD PRESSURE MEASUREMENT
     Route: 048
  2. SIMPONI [Suspect]
     Active Substance: GOLIMUMAB
     Indication: ARTHRITIS
     Dosage: 50MG/ 0.5ML
     Route: 058
  3. SULFAZINE [Concomitant]
     Active Substance: SULFASALAZINE
     Indication: COLITIS ULCERATIVE
     Route: 048

REACTIONS (5)
  - Accidental exposure to product [Unknown]
  - Drug dose omission [Unknown]
  - Product use issue [Unknown]
  - Device malfunction [Unknown]
  - Off label use [Unknown]

NARRATIVE: CASE EVENT DATE: 20160404
